FAERS Safety Report 8855112 (Version 1)
Quarter: 2012Q4

REPORT INFORMATION
  Report Type: Report from Study
  Country: JP (occurrence: JP)
  Receive Date: 20121023
  Receipt Date: 20121023
  Transmission Date: 20130627
  Serious: Yes (Other)
  Sender: FDA-Public Use
  Company Number: JP-VERTEX PHARMACEUTICAL INC.-AE-2012-008218

PATIENT
  Age: 58 Year
  Sex: Male

DRUGS (8)
  1. VX-950 [Suspect]
     Indication: HEPATITIS C
     Dosage: 2250 mg, qd
     Route: 048
     Dates: start: 20120418, end: 20120501
  2. VX-950 [Suspect]
     Dosage: 1500 mg, qd
     Route: 048
     Dates: start: 20120502, end: 20120515
  3. RIBAVIRIN [Suspect]
     Indication: HEPATITIS C
     Dosage: 600 mg, qd
     Route: 048
     Dates: start: 20120418, end: 20120501
  4. RIBAVIRIN [Suspect]
     Dosage: 400 mg, qd
     Route: 048
     Dates: start: 20120502, end: 20120515
  5. PEGINTERFERON ALFA-2B [Suspect]
     Indication: HEPATITIS C
     Dosage: 100 ?g, UNK
     Route: 058
     Dates: start: 20120418, end: 20120508
  6. PEGINTERFERON ALFA-2B [Suspect]
     Dosage: 50 ?g, UNK
     Route: 051
     Dates: start: 20120509, end: 20120515
  7. DIOVAN [Concomitant]
     Dosage: 80 mg, qd
     Route: 048
  8. AMLODIN [Concomitant]
     Dosage: 5 mg, qd
     Route: 048

REACTIONS (1)
  - Retinopathy [Recovered/Resolved]
